FAERS Safety Report 8665491 (Version 2)
Quarter: 2012Q4

REPORT INFORMATION
  Report Type: 
  Country: IT (occurrence: IT)
  Receive Date: 20120716
  Receipt Date: 20121112
  Transmission Date: 20130627
  Serious: Yes (Other)
  Sender: FDA-Public Use
  Company Number: PHHY2012IT060034

PATIENT
  Age: 61 Year
  Sex: Male

DRUGS (5)
  1. ALENDRONIC ACID [Suspect]
     Dosage: 70 mg, QW
     Route: 048
     Dates: start: 20120310, end: 20120709
  2. ATORVASTATIN [Suspect]
     Dosage: 40 mg, daily
     Route: 048
     Dates: start: 20120307, end: 20120709
  3. EFIENT [Suspect]
     Dosage: 5 mg, daily
     Route: 048
     Dates: start: 20120307, end: 20120709
  4. DIBASE [Concomitant]
  5. CARDIOASPIRIN [Concomitant]

REACTIONS (1)
  - Convulsion [Recovered/Resolved]
